FAERS Safety Report 4422843-0 (Version None)
Quarter: 2004Q3

REPORT INFORMATION
  Report Type: 
  Country: None (occurrence: None)
  Receive Date: 20040806
  Receipt Date: 20040721
  Transmission Date: 20050211
  Serious: Yes (Other)
  Sender: FDA-Public Use
  Company Number: USA040773309

PATIENT
  Sex: Female

DRUGS (5)
  1. FORTEO [Suspect]
  2. PREVACID [Concomitant]
  3. SYNTHROID ILEVOTHYROXINE SODIUM) [Concomitant]
  4. FLONASE [Concomitant]
  5. ZYRTEC [Concomitant]

REACTIONS (3)
  - BREAST CANCER [None]
  - GALLBLADDER OPERATION [None]
  - PHARMACEUTICAL PRODUCT COMPLAINT [None]
